FAERS Safety Report 19666826 (Version 1)
Quarter: 2021Q3

REPORT INFORMATION
  Report Type: Spontaneous
  Country: US (occurrence: US)
  Receive Date: 20210806
  Receipt Date: 20210806
  Transmission Date: 20211014
  Serious: Yes (Hospitalization)
  Sender: FDA-Public Use
  Company Number: None

PATIENT
  Sex: Male

DRUGS (19)
  1. TOBRAMYCIN. [Suspect]
     Active Substance: TOBRAMYCIN
     Indication: BRONCHIECTASIS
     Route: 055
     Dates: start: 20200407
  2. SIMVASTATIN. [Concomitant]
     Active Substance: SIMVASTATIN
  3. ACITRETIN. [Concomitant]
     Active Substance: ACITRETIN
  4. AMOXICILLIN. [Concomitant]
     Active Substance: AMOXICILLIN
  5. ARANESP INJ [Concomitant]
  6. ALLOPURINOL. [Concomitant]
     Active Substance: ALLOPURINOL
  7. CALCITRIOL. [Concomitant]
     Active Substance: CALCITRIOL
  8. DEFERASIROX. [Concomitant]
     Active Substance: DEFERASIROX
  9. ELIQUIS [Concomitant]
     Active Substance: APIXABAN
  10. ERGOCALCIFER CAP [Concomitant]
  11. METOPROL TAR TAB [Concomitant]
  12. RETACRIT [Concomitant]
     Active Substance: EPOETIN ALFA-EPBX
  13. MAGNESIUM?OX [Concomitant]
  14. ACYCLOVIR. [Concomitant]
     Active Substance: ACYCLOVIR
  15. CICLOPIROX POW OLAMINE [Concomitant]
  16. MONTELUKAST SODIUM. [Concomitant]
     Active Substance: MONTELUKAST SODIUM
  17. PREDNISONE TAB [Concomitant]
     Active Substance: PREDNISONE
  18. BACTRIM TAB [Concomitant]
  19. PROMACTA [Concomitant]
     Active Substance: ELTROMBOPAG OLAMINE

REACTIONS (3)
  - Therapy interrupted [None]
  - Pneumonia [None]
  - Pulmonary oedema [None]
